FAERS Safety Report 7882488-7 (Version None)
Quarter: 2011Q4

REPORT INFORMATION
  Report Type: 
  Country: None (occurrence: None)
  Receive Date: 20111101
  Receipt Date: 20111027
  Transmission Date: 20120403
  Serious: Yes (Hospitalization, Other)
  Sender: FDA-Public Use
  Company Number: US-BRISTOL-MYERS SQUIBB COMPANY-15760465

PATIENT
  Age: 57 Year
  Sex: Male

DRUGS (8)
  1. SIROLIMUS [Suspect]
     Indication: RENAL TRANSPLANT
     Dosage: ALSO TAKEN 1 MG,TAB
     Route: 048
     Dates: start: 20080125
  2. NOVOLOG [Concomitant]
     Dosage: 1 DF = 100 UNIT/ML SUBQ SOLN
     Route: 058
  3. FLOMAX [Concomitant]
     Route: 048
  4. OMEPRAZOLE [Concomitant]
     Dosage: CAPS
     Route: 048
  5. ASPIRIN [Concomitant]
     Dosage: TAB
     Route: 048
  6. BELATACEPT [Suspect]
     Indication: RENAL TRANSPLANT
     Route: 042
     Dates: start: 20080125
  7. LANTUS [Concomitant]
     Dosage: 1 DF = 100 UNIT/ML SUBQ SOLN
     Route: 058
  8. SIMVASTATIN [Concomitant]
     Route: 048

REACTIONS (12)
  - CELLULITIS [None]
  - VOMITING [None]
  - IMPAIRED HEALING [None]
  - HYPOPHAGIA [None]
  - CHILLS [None]
  - NAUSEA [None]
  - STREPTOCOCCAL INFECTION [None]
  - ENTEROCOCCAL INFECTION [None]
  - BLOOD CREATININE INCREASED [None]
  - PYREXIA [None]
  - SKIN ULCER [None]
  - BLOOD GLUCOSE INCREASED [None]
